FAERS Safety Report 17772412 (Version 3)
Quarter: 2020Q3

REPORT INFORMATION
  Report Type: Spontaneous
  Country: US (occurrence: US)
  Receive Date: 20200512
  Receipt Date: 20200708
  Transmission Date: 20201102
  Serious: No
  Sender: FDA-Public Use
  Company Number: US-ASTRAZENECA-2020SE59924

PATIENT
  Age: 21746 Day
  Sex: Male
  Weight: 90.7 kg

DRUGS (2)
  1. BYDUREON BCISE [Suspect]
     Active Substance: EXENATIDE
     Indication: TYPE 2 DIABETES MELLITUS
     Dosage: ONCE A WEEK
     Route: 058
  2. METFORMIN [Concomitant]
     Active Substance: METFORMIN HYDROCHLORIDE
     Indication: DIABETES MELLITUS
     Route: 048
     Dates: start: 201903

REACTIONS (7)
  - Dysgeusia [Unknown]
  - Incorrect dose administered by device [Unknown]
  - Drug delivery system issue [Unknown]
  - Injection site haemorrhage [Unknown]
  - Product dose omission issue [Unknown]
  - Injury associated with device [Unknown]
  - Device leakage [Unknown]

NARRATIVE: CASE EVENT DATE: 20200423
